FAERS Safety Report 14950830 (Version 1)
Quarter: 2018Q2

REPORT INFORMATION
  Report Type: Spontaneous
  Country: US (occurrence: US)
  Receive Date: 20180530
  Receipt Date: 20180530
  Transmission Date: 20180711
  Serious: No
  Sender: FDA-Public Use
  Company Number: US-BIOGEN-2018BI00585019

PATIENT
  Age: 46 Year
  Sex: Female

DRUGS (1)
  1. TECFIDERA [Suspect]
     Active Substance: DIMETHYL FUMARATE
     Indication: MULTIPLE SCLEROSIS
     Dosage: MAINTENANCE DOSE
     Route: 048

REACTIONS (6)
  - Motor dysfunction [Unknown]
  - Abdominal pain upper [Unknown]
  - Dizziness [Unknown]
  - Coordination abnormal [Unknown]
  - Feeling abnormal [Unknown]
  - Feeling hot [Unknown]

NARRATIVE: CASE EVENT DATE: 20180507
